FAERS Safety Report 13016104 (Version 2)
Quarter: 2017Q1

REPORT INFORMATION
  Report Type: Spontaneous
  Country: US (occurrence: US)
  Receive Date: 20161212
  Receipt Date: 20170303
  Transmission Date: 20170428
  Serious: Yes (Hospitalization)
  Sender: FDA-Public Use
  Company Number: US-JNJFOC-20161118854

PATIENT
  Age: 85 Year
  Sex: Female

DRUGS (3)
  1. XARELTO [Suspect]
     Active Substance: RIVAROXABAN
     Indication: THROMBOSIS PROPHYLAXIS
     Dosage: THE PATIENT WAS TREATED WITH 10 MG AND 15 MG.
     Route: 048
     Dates: start: 201302, end: 20140206
  2. XARELTO [Suspect]
     Active Substance: RIVAROXABAN
     Indication: ATRIAL FIBRILLATION
     Dosage: THE PATIENT WAS TREATED WITH 10 MG AND 15 MG.
     Route: 048
     Dates: start: 201302, end: 20140206
  3. XARELTO [Suspect]
     Active Substance: RIVAROXABAN
     Indication: CEREBROVASCULAR ACCIDENT PROPHYLAXIS
     Dosage: THE PATIENT WAS TREATED WITH 10 MG AND 15 MG.
     Route: 048
     Dates: start: 201302, end: 20140206

REACTIONS (2)
  - Rectal haemorrhage [Unknown]
  - Upper gastrointestinal haemorrhage [Unknown]

NARRATIVE: CASE EVENT DATE: 20130504
